FAERS Safety Report 24180159 (Version 1)
Quarter: 2024Q3

REPORT INFORMATION
  Report Type: Spontaneous
  Country: US (occurrence: US)
  Receive Date: 20240806
  Receipt Date: 20240806
  Transmission Date: 20241017
  Serious: No
  Sender: SANOFI AVENTIS
  Company Number: US-SA-SAC20240801000245

PATIENT
  Age: 46 Year
  Sex: Male
  Weight: 108.84 kg

DRUGS (6)
  1. DUPIXENT [Suspect]
     Active Substance: DUPILUMAB
     Indication: Eosinophilic oesophagitis
     Dosage: 300 MG, QW
     Route: 058
     Dates: start: 202404
  2. SUCRALFATE [Concomitant]
     Active Substance: SUCRALFATE
  3. PANTOPRAZOLE SODIUM [Concomitant]
     Active Substance: PANTOPRAZOLE SODIUM
  4. VITAMINS NOS [Concomitant]
     Active Substance: VITAMINS
  5. FLONASE ALLERGY RELIEF [Concomitant]
     Active Substance: FLUTICASONE PROPIONATE
  6. ALLEGRA ALLERGY [Concomitant]
     Active Substance: FEXOFENADINE HYDROCHLORIDE

REACTIONS (11)
  - Injection site warmth [Unknown]
  - Night sweats [Unknown]
  - Sinus disorder [Unknown]
  - Insomnia [Unknown]
  - Toothache [Unknown]
  - Injection site rash [Unknown]
  - Injection site pain [Unknown]
  - Injection site swelling [Unknown]
  - Injection site bruising [Recovering/Resolving]
  - Condition aggravated [Recovering/Resolving]
  - Injection site erythema [Unknown]

NARRATIVE: CASE EVENT DATE: 20240101
